FAERS Safety Report 8187307-X (Version None)
Quarter: 2012Q1

REPORT INFORMATION
  Report Type: 
  Country: None (occurrence: None)
  Receive Date: 20120306
  Receipt Date: 20120220
  Transmission Date: 20120608
  Serious: Yes (Other)
  Sender: FDA-Public Use
  Company Number: CA-ROCHE-1044893

PATIENT
  Sex: Female
  Weight: 65 kg

DRUGS (8)
  1. XOLAIR [Suspect]
     Route: 058
     Dates: start: 20090707
  2. XOLAIR [Suspect]
     Route: 058
     Dates: start: 20100113
  3. XOLAIR [Suspect]
     Route: 058
     Dates: start: 20090929
  4. ALLEGRA [Concomitant]
  5. VENTOLIN [Concomitant]
  6. XOLAIR [Suspect]
     Indication: ASTHMA
     Route: 058
     Dates: start: 20080315
  7. CETIRIZINE HCL [Concomitant]
  8. XOLAIR [Suspect]
     Dates: start: 20091027

REACTIONS (4)
  - PULMONARY CONGESTION [None]
  - PHARYNGEAL OEDEMA [None]
  - SEASONAL ALLERGY [None]
  - APHONIA [None]
